FAERS Safety Report 14175733 (Version 2)
Quarter: 2017Q4

REPORT INFORMATION
  Report Type: Report from Study
  Country: CL (occurrence: CL)
  Receive Date: 20171109
  Receipt Date: 20171114
  Transmission Date: 20180321
  Serious: Yes (Death, Hospitalization)
  Sender: FDA-Public Use
  Company Number: PHHY2017CL164970

PATIENT
  Age: 30 Year
  Sex: Female

DRUGS (1)
  1. ENTRESTO [Suspect]
     Active Substance: SACUBITRIL\VALSARTAN
     Indication: PRODUCT USED FOR UNKNOWN INDICATION
     Route: 065

REACTIONS (5)
  - Swelling [Unknown]
  - Cardiomegaly [Unknown]
  - Cardio-respiratory arrest [Fatal]
  - Fluid retention [Unknown]
  - Cardiac function test abnormal [Unknown]
